FAERS Safety Report 8824567 (Version 2)
Quarter: 2013Q2

REPORT INFORMATION
  Report Type: Spontaneous
  Country: GB (occurrence: GB)
  Receive Date: 20121004
  Receipt Date: 20130613
  Transmission Date: 20140414
  Serious: Yes (Death, Other)
  Sender: FDA-Public Use
  Company Number: GB-CELGENEUS-167-21880-12092937

PATIENT
  Sex: 0

DRUGS (1)
  1. REVLIMID [Suspect]
     Indication: PLASMA CELL MYELOMA
     Route: 048

REACTIONS (7)
  - Death [Fatal]
  - Plasma cell myeloma [Fatal]
  - Peripheral ischaemia [Unknown]
  - Pancytopenia [Unknown]
  - Adverse drug reaction [Unknown]
  - Renal impairment [Unknown]
  - Fatigue [Unknown]
